FAERS Safety Report 10630399 (Version 1)
Quarter: 2014Q4

REPORT INFORMATION
  Report Type: Spontaneous
  Country: US (occurrence: US)
  Receive Date: 20141205
  Receipt Date: 20141205
  Transmission Date: 20150529
  Serious: No
  Sender: FDA-Public Use
  Company Number: US-BRISTOL-MYERS SQUIBB COMPANY-20717021

PATIENT
  Age: 66 Year
  Sex: Female

DRUGS (34)
  1. THERATEARS [Concomitant]
     Active Substance: CARBOXYMETHYLCELLULOSE SODIUM
     Dosage: NUTRITION.?TAB
  2. AMOXIL [Concomitant]
     Active Substance: AMOXICILLIN
  3. RANITIDINE HCL TABS 300MG [Concomitant]
     Dosage: EVERY MORNING
     Route: 048
  4. POTASSIUM [Concomitant]
     Active Substance: POTASSIUM
     Dosage: EVERY MORNING
     Route: 048
  5. LASIX [Concomitant]
     Active Substance: FUROSEMIDE
     Dosage: TAB
     Route: 048
  6. LOVASTATIN. [Concomitant]
     Active Substance: LOVASTATIN
     Dosage: EACH NIGHT
     Route: 048
  7. ZOCOR [Concomitant]
     Active Substance: SIMVASTATIN
  8. WELCHOL [Concomitant]
     Active Substance: COLESEVELAM HYDROCHLORIDE
  9. XALATAN [Concomitant]
     Active Substance: LATANOPROST
  10. IMIPRAMINE HCL [Concomitant]
     Active Substance: IMIPRAMINE HYDROCHLORIDE
     Dosage: 4TABS AT BEDTIME
     Route: 048
  11. METAMUCIL [Concomitant]
     Active Substance: PLANTAGO SEED
  12. SYSTANE (HYPROMELLOSE 2910 (4000 MPA.S)) [Concomitant]
     Active Substance: HYPROMELLOSE 2910 (4000 MPA.S)
     Dosage: 1DF = 2-4 DROPS
  13. HUMULIN 70/30 [Concomitant]
     Active Substance: INSULIN HUMAN
     Dosage: SUSPENSION.?AS DIRECTED
     Route: 058
  14. TRICOR [Concomitant]
     Active Substance: FENOFIBRATE
  15. PROTONIX [Concomitant]
     Active Substance: PANTOPRAZOLE SODIUM
     Dosage: DELAYED RELEASE TAB
     Route: 048
  16. CELEBREX [Concomitant]
     Active Substance: CELECOXIB
     Dosage: CAPSULE.?EVERY MORNING
     Route: 048
  17. DOXYCYCLINE. [Concomitant]
     Active Substance: DOXYCYCLINE
     Dosage: CAP
     Route: 048
  18. TOPAMAX [Concomitant]
     Active Substance: TOPIRAMATE
     Dosage: CAP.
     Route: 048
  19. NEURONTIN [Concomitant]
     Active Substance: GABAPENTIN
     Dosage: CAPS
     Route: 048
  20. CRESTOR [Concomitant]
     Active Substance: ROSUVASTATIN CALCIUM
  21. COMBIVENT [Concomitant]
     Active Substance: ALBUTEROL SULFATE\IPRATROPIUM BROMIDE
     Dosage: 1DF = 20-100MCG/ACT AEROSOL SOLUTION.?1PUFF
     Route: 055
  22. MORPHINE SULFATE. [Concomitant]
     Active Substance: MORPHINE SULFATE
     Dosage: TAB
     Route: 049
  23. PRAVACHOL [Concomitant]
     Active Substance: PRAVASTATIN SODIUM
  24. REGLAN [Concomitant]
     Active Substance: METOCLOPRAMIDE HYDROCHLORIDE
     Dosage: TAB
     Route: 048
  25. CORGARD TABS 40 MG [Concomitant]
     Dosage: EVERY MORNING
     Route: 048
  26. KLONOPIN [Concomitant]
     Active Substance: CLONAZEPAM
     Indication: ANXIETY
     Dosage: TAB
     Route: 048
  27. CALCIUM [Concomitant]
     Active Substance: CALCIUM
  28. OXYCODONE HCL [Concomitant]
     Active Substance: OXYCODONE HYDROCHLORIDE
     Dosage: TAB
     Route: 048
  29. GLUCOPHAGE [Suspect]
     Active Substance: METFORMIN HYDROCHLORIDE
  30. TALWIN [Concomitant]
     Active Substance: PENTAZOCINE LACTATE
  31. SYNTHROID [Concomitant]
     Active Substance: LEVOTHYROXINE SODIUM
     Dosage: TAB.?IN THE MORNING
     Route: 048
  32. INSULIN [Concomitant]
     Active Substance: INSULIN NOS
     Dosage: 1DF = 30G X 1/2^ 0.3 ML MISCELLANEOUS.?ULTRAFINE
  33. VITAMIN B COMPLEX [Concomitant]
     Active Substance: CYANOCOBALAMIN\DEXPANTHENOL\NIACINAMIDE\PYRIDOXINE HYDROCHLORIDE\RIBOFLAVIN 5^-PHOSPHATE SODIUM\THIAMINE HYDROCHLORIDE\VITAMIN B COMPLEX
     Dosage: TAB
  34. OXYCODONE [Concomitant]
     Active Substance: OXYCODONE

REACTIONS (1)
  - Drug hypersensitivity [Unknown]
